FAERS Safety Report 25990218 (Version 1)
Quarter: 2025Q4

REPORT INFORMATION
  Report Type: Spontaneous
  Country: US (occurrence: US)
  Receive Date: 20251103
  Receipt Date: 20251103
  Transmission Date: 20260117
  Serious: Yes (Death, Hospitalization, Other)
  Sender: NOVO NORDISK
  Company Number: US-NOVOPROD-1549915

PATIENT
  Sex: Male

DRUGS (1)
  1. WEGOVY [Suspect]
     Active Substance: SEMAGLUTIDE
     Indication: Weight control
     Dosage: UNK

REACTIONS (7)
  - Myocardial infarction [Fatal]
  - Fall [Unknown]
  - Pain [Unknown]
  - Cardiac failure congestive [Unknown]
  - Lymphoma [Unknown]
  - Pulmonary oedema [Unknown]
  - Weight decreased [Unknown]

NARRATIVE: CASE EVENT DATE: 20251009
